FAERS Safety Report 8896358 (Version 1)
Quarter: 2012Q4

REPORT INFORMATION
  Report Type: Spontaneous
  Country: US (occurrence: None)
  Receive Date: 20121102
  Receipt Date: 20121102
  Transmission Date: 20130627
  Serious: Yes (Death)
  Sender: FDA-Public Use
  Company Number: 1475866

PATIENT
  Age: 26 Year
  Sex: Male

DRUGS (1)
  1. HEPARIN SODIUM [Suspect]
     Indication: PULMONARY EMBOLUS
     Dosage: Not Reported, UNKNOWN, Intravenous drip

REACTIONS (6)
  - Exsanguination [None]
  - Cardiac arrest [None]
  - Hypotension [None]
  - Tumour rupture [None]
  - Tumour haemorrhage [None]
  - General physical health deterioration [None]
